FAERS Safety Report 4856962-1 (Version None)
Quarter: 2005Q4

REPORT INFORMATION
  Report Type: 
  Country: None (occurrence: None)
  Receive Date: 20051219
  Receipt Date: 20041203
  Transmission Date: 20060501
  Serious: No
  Sender: FDA-Public Use
  Company Number: US-GLAXOSMITHKLINE-A0535962A

PATIENT
  Age: 50 Year
  Sex: Female

DRUGS (3)
  1. NICODERM CQ [Suspect]
  2. NICODERM CQ [Suspect]
  3. ZYBAN [Concomitant]

REACTIONS (6)
  - AGITATION [None]
  - APPLICATION SITE ERYTHEMA [None]
  - APPLICATION SITE PRURITUS [None]
  - APPLICATION SITE SWELLING [None]
  - CRYING [None]
  - IRRITABILITY [None]
